FAERS Safety Report 8136942-3 (Version None)
Quarter: 2012Q1

REPORT INFORMATION
  Report Type: 
  Country: None (occurrence: None)
  Receive Date: 20120214
  Receipt Date: 20120207
  Transmission Date: 20120608
  Serious: Yes (Hospitalization, Disabling, Other)
  Sender: FDA-Public Use
  Company Number: US-MERCK-1107USA03610

PATIENT
  Age: 61 Year
  Sex: Female
  Weight: 80 kg

DRUGS (11)
  1. FOSAMAX [Suspect]
     Indication: OSTEOPENIA
     Route: 048
     Dates: start: 19950222, end: 20100501
  2. FOSAMAX [Suspect]
     Route: 048
     Dates: start: 20090101, end: 20100501
  3. FOSAMAX [Suspect]
     Route: 048
     Dates: start: 20090101, end: 20100501
  4. ATENOLOL [Concomitant]
     Route: 065
  5. HYDROCHLOROTHIAZIDE [Concomitant]
     Route: 065
  6. FOSAMAX [Suspect]
     Indication: OSTEOPOROSIS
     Route: 048
     Dates: start: 19950222, end: 20100501
  7. AMLODIPINE [Concomitant]
     Route: 065
  8. DIOVAN [Concomitant]
     Route: 065
  9. SIMVASTATIN [Concomitant]
     Route: 065
  10. HUMULIN N [Concomitant]
     Route: 065
  11. HUMALOG [Concomitant]
     Route: 065

REACTIONS (37)
  - JAW DISORDER [None]
  - FEMUR FRACTURE [None]
  - BREAST CANCER STAGE I [None]
  - OSTEOPOROSIS [None]
  - NECK MASS [None]
  - TOOTH ABSCESS [None]
  - CATARACT [None]
  - VITREOUS DETACHMENT [None]
  - THYROID CANCER [None]
  - LOW TURNOVER OSTEOPATHY [None]
  - ARTHROPATHY [None]
  - STOMATITIS [None]
  - STRESS FRACTURE [None]
  - ORAL DISORDER [None]
  - TOOTH DISORDER [None]
  - TENOSYNOVITIS [None]
  - PERIODONTAL DISEASE [None]
  - NEOPLASM [None]
  - ADVERSE DRUG REACTION [None]
  - HYPOTHYROIDISM [None]
  - IMPLANT SITE INFECTION [None]
  - OSTEOARTHRITIS [None]
  - FRACTURE [None]
  - ANKLE FRACTURE [None]
  - PALATAL DISORDER [None]
  - CAROTID BRUIT [None]
  - DEVICE FAILURE [None]
  - OSTEONECROSIS OF JAW [None]
  - DIABETIC RETINOPATHY [None]
  - BONE LOSS [None]
  - MACULAR OEDEMA [None]
  - TOOTH FRACTURE [None]
  - IMPAIRED HEALING [None]
  - CARPAL TUNNEL SYNDROME [None]
  - GALLBLADDER DISORDER [None]
  - ORAL FIBROMA [None]
  - COUGH [None]
